FAERS Safety Report 20076770 (Version 1)
Quarter: 2021Q4

REPORT INFORMATION
  Report Type: Spontaneous
  Country: CA (occurrence: CA)
  Receive Date: 20211116
  Receipt Date: 20211116
  Transmission Date: 20220303
  Serious: Yes (Other)
  Sender: FDA-Public Use
  Company Number: CA-SANOFI-00847103

PATIENT
  Sex: Female

DRUGS (1)
  1. ALLEGRA [Suspect]
     Active Substance: FEXOFENADINE HYDROCHLORIDE
     Dosage: UNK

REACTIONS (6)
  - Mast cell activation syndrome [Unknown]
  - Pain [Unknown]
  - Movement disorder [Unknown]
  - Arthralgia [Unknown]
  - Middle insomnia [Unknown]
  - Adverse drug reaction [Unknown]
